FAERS Safety Report 19497733 (Version 1)
Quarter: 2021Q3

REPORT INFORMATION
  Report Type: Report from Study
  Country: US (occurrence: US)
  Receive Date: 20210706
  Receipt Date: 20210706
  Transmission Date: 20211014
  Serious: Yes (Hospitalization)
  Sender: FDA-Public Use
  Company Number: US-TAKEDA-2021TUS039980

PATIENT
  Sex: Female

DRUGS (1)
  1. 644 (ECALLANTIDE) [Suspect]
     Active Substance: ECALLANTIDE
     Indication: HEREDITARY ANGIOEDEMA
     Dosage: 30 MILLIGRAM, INJECT AS 3 SEPARATE INJECTIONS
     Route: 058

REACTIONS (2)
  - COVID-19 [Unknown]
  - Therapy interrupted [Unknown]
